FAERS Safety Report 5119479-5 (Version None)
Quarter: 2006Q3

REPORT INFORMATION
  Report Type: 
  Country: None (occurrence: None)
  Receive Date: 20060928
  Receipt Date: 20060920
  Transmission Date: 20061208
  Serious: Yes (Death, Hospitalization)
  Sender: FDA-Public Use
  Company Number: US-2006-008030

PATIENT
  Age: 86 Year
  Sex: Male
  Weight: 54 kg

DRUGS (50)
  1. CAMPATH [Suspect]
     Indication: CHRONIC LYMPHOCYTIC LEUKAEMIA
     Dosage: 30 MG, D1-5 EVERY 28 DAYS, SUBCUTANEOUS
     Route: 058
     Dates: start: 20060220, end: 20060224
  2. CAMPATH [Suspect]
     Indication: CHRONIC LYMPHOCYTIC LEUKAEMIA
     Dosage: 30 MG, D1-5 EVERY 28 DAYS, SUBCUTANEOUS
     Route: 058
     Dates: start: 20060320, end: 20060324
  3. FLUDARA [Suspect]
     Indication: CHRONIC LYMPHOCYTIC LEUKAEMIA
     Dosage: 25 MG/M2, D1-5 EVERY 28 DAYS, INTRAVENOUS
     Route: 042
     Dates: start: 20060220, end: 20060224
  4. FLUDARA [Suspect]
     Indication: CHRONIC LYMPHOCYTIC LEUKAEMIA
     Dosage: 25 MG/M2, D1-5 EVERY 28 DAYS, INTRAVENOUS
     Route: 042
     Dates: start: 20060320, end: 20060324
  5. NEUPOGEN [Concomitant]
  6. ARANESP [Concomitant]
  7. CEFEPIME [Concomitant]
  8. VANCOMYCIN [Concomitant]
  9. MORPHINE [Concomitant]
  10. ACYCLOVIR [Concomitant]
  11. FLAGYL [Concomitant]
  12. DIFLUCAN [Concomitant]
  13. BACTRIM DS [Concomitant]
  14. CASPOFUNGIN (CASPOFUNGIN) [Concomitant]
  15. PLATELETS [Concomitant]
  16. RED BLOOD CELLS [Concomitant]
  17. TYLENOL [Concomitant]
  18. ACYCLOVIR [Concomitant]
  19. BACTRIM DS [Concomitant]
  20. ETHMOZINE (MORACIZINE HYDROCHLORIDE) [Concomitant]
  21. DIGOXIN [Concomitant]
  22. LOPRESSOR [Concomitant]
  23. ASPIRIN [Concomitant]
  24. TUMS [Concomitant]
  25. TYLENOL [Concomitant]
  26. MILK OF MAGNESIA TAB [Concomitant]
  27. ASCORBIC ACID [Concomitant]
  28. TRAVATAN [Concomitant]
  29. COSOPT (TIMOLOL MALEATE, DORZOLAMIDE HYDROCHLORIDE) DROP [Concomitant]
  30. CIPROFLOXACIN [Concomitant]
  31. NEULASTA [Concomitant]
  32. ARANESP [Concomitant]
  33. MULTIVITAMIN [Concomitant]
  34. METRONIDAZOLE [Concomitant]
  35. TYLENOL [Concomitant]
  36. BENADRYL [Concomitant]
  37. LIDOCAINE [Concomitant]
  38. KEFZOL [Concomitant]
  39. MIDAZOLAM HCL [Concomitant]
  40. FENTANYL [Concomitant]
  41. PROPOFOL [Concomitant]
  42. ZOFRAN [Concomitant]
  43. LOVENOX [Concomitant]
  44. PERIOGARD (ETHANOL, CHLORHEXIDINE GLUCONATE) [Concomitant]
  45. GELCAIR (HYALURONATE SODIUM, ENOXOLONE POLYVIDONE) [Concomitant]
  46. POTASSIUM CHLORIDE [Concomitant]
  47. ACTIVASE [Concomitant]
  48. NEXIUM [Concomitant]
  49. LOVENOX [Concomitant]
  50. COMPAZINE [Concomitant]

REACTIONS (28)
  - ABSCESS [None]
  - CACHEXIA [None]
  - CHILLS [None]
  - CHRONIC LYMPHOCYTIC LEUKAEMIA [None]
  - COMPUTERISED TOMOGRAM ABNORMAL [None]
  - CONFUSIONAL STATE [None]
  - CORONARY ARTERY DISEASE [None]
  - DIARRHOEA [None]
  - FEBRILE NEUTROPENIA [None]
  - FUNGAL INFECTION [None]
  - HEPATOMEGALY [None]
  - HYPOTHERMIA [None]
  - LIVER ABSCESS [None]
  - LUNG NEOPLASM [None]
  - LYMPHADENOPATHY [None]
  - MENTAL STATUS CHANGES [None]
  - MUCOSAL INFLAMMATION [None]
  - MULTI-ORGAN FAILURE [None]
  - NAUSEA [None]
  - NEUTROPENIA [None]
  - PANCYTOPENIA [None]
  - PERFORMANCE STATUS DECREASED [None]
  - PNEUMONIA ASPIRATION [None]
  - REFUSAL OF TREATMENT BY PATIENT [None]
  - RENAL ABSCESS [None]
  - SEPTIC EMBOLUS [None]
  - SPLENIC ABSCESS [None]
  - THROMBOCYTOPENIA [None]
